FAERS Safety Report 6419293-4 (Version None)
Quarter: 2009Q4

REPORT INFORMATION
  Report Type: 
  Country: None (occurrence: None)
  Receive Date: 20091029
  Receipt Date: 20091023
  Transmission Date: 20100525
  Serious: Yes (Hospitalization, Other)
  Sender: FDA-Public Use
  Company Number: US-BRISTOL-MYERS SQUIBB COMPANY-14829899

PATIENT
  Age: 76 Year
  Sex: Male
  Weight: 76 kg

DRUGS (5)
  1. CETUXIMAB [Suspect]
     Indication: OESOPHAGEAL ADENOCARCINOMA
     Dosage: 450 MG/M2 ON DAY 1 AND 250 MG/M2 ON DAYS 8, 15, 22, 29, 36
     Dates: start: 20090922, end: 20091020
  2. CISPLATIN [Suspect]
     Indication: OESOPHAGEAL ADENOCARCINOMA
     Dosage: 25 MG/M2 ON DAYS 1, 8, 15, 22, 29, AND 36.
     Dates: start: 20090922, end: 20091020
  3. TAXOL [Suspect]
     Indication: OESOPHAGEAL ADENOCARCINOMA
     Dosage: 50 MG/M2 ON DAYS 1, 8, 15, 22, 29, AND 36.
     Dates: start: 20090922, end: 20091020
  4. RADIATION THERAPY [Suspect]
     Indication: OESOPHAGEAL ADENOCARCINOMA
     Dosage: 1 DF = 3960 GY NO OF FRACTIONS: 22 NO OF ELAPSED DAYS: 30
     Dates: start: 20090922, end: 20091022
  5. COUMADIN [Suspect]

REACTIONS (6)
  - HYPERGLYCAEMIA [None]
  - HYPOPHOSPHATAEMIA [None]
  - LEUKOPENIA [None]
  - LYMPHOPENIA [None]
  - NEUTROPENIA [None]
  - OESOPHAGEAL HAEMORRHAGE [None]
